FAERS Safety Report 4366365-4 (Version None)
Quarter: 2004Q2

REPORT INFORMATION
  Report Type: 
  Country: None (occurrence: None)
  Receive Date: 20040526
  Receipt Date: 20040526
  Transmission Date: 20050107
  Serious: Yes (Disabling, Other)
  Sender: FDA-Public Use
  Company Number: None

PATIENT
  Age: 71 Year
  Sex: Male
  Weight: 54.4316 kg

DRUGS (1)
  1. SUSTIVA [Suspect]
     Indication: HIV INFECTION
     Dosage: 1 DOSE 1 X EVENING

REACTIONS (7)
  - AGEUSIA [None]
  - DISTURBANCE IN ATTENTION [None]
  - HYPERTONIC BLADDER [None]
  - INSOMNIA [None]
  - T-LYMPHOCYTE COUNT DECREASED [None]
  - VIRAL LOAD INCREASED [None]
  - WEIGHT DECREASED [None]
